FAERS Safety Report 6887230-4 (Version None)
Quarter: 2010Q3

REPORT INFORMATION
  Report Type: 
  Country: None (occurrence: None)
  Receive Date: 20100730
  Receipt Date: 20100722
  Transmission Date: 20110219
  Serious: Yes (Other)
  Sender: FDA-Public Use
  Company Number: US-SANOFI-AVENTIS-2010SA043389

PATIENT
  Age: 65 Year
  Sex: Male

DRUGS (6)
  1. PLAVIX [Suspect]
     Route: 048
     Dates: start: 20090101, end: 20100721
  2. PLAVIX [Suspect]
     Indication: ATRIAL FIBRILLATION
     Route: 048
     Dates: start: 20090101, end: 20100721
  3. SOTALOL HCL [Suspect]
     Route: 048
  4. LIPITOR [Concomitant]
  5. GEMFIBROZIL [Concomitant]
  6. MAGNESIUM [Concomitant]

REACTIONS (2)
  - ATRIAL FIBRILLATION [None]
  - FATIGUE [None]
